FAERS Safety Report 17618765 (Version 6)
Quarter: 2022Q2

REPORT INFORMATION
  Report Type: Report from Study
  Country: CO (occurrence: CO)
  Receive Date: 20200403
  Receipt Date: 20220627
  Transmission Date: 20220721
  Serious: Yes (Hospitalization, Other)
  Sender: FDA-Public Use
  Company Number: CO-ABBVIE-20K-036-3348884-00

PATIENT
  Sex: Male
  Weight: 64 kg

DRUGS (6)
  1. HUMIRA [Suspect]
     Active Substance: ADALIMUMAB
     Indication: Rheumatoid arthritis
     Route: 058
     Dates: start: 20100510
  2. HUMIRA [Suspect]
     Active Substance: ADALIMUMAB
     Indication: Rheumatoid arthritis
     Route: 058
     Dates: end: 20211101
  3. HUMIRA [Suspect]
     Active Substance: ADALIMUMAB
     Route: 058
     Dates: end: 20220201
  4. METHOTREXATE [Concomitant]
     Active Substance: METHOTREXATE
     Indication: Product used for unknown indication
     Dosage: ON SUNDAYS
     Route: 065
  5. PYRIDOXINE [Concomitant]
     Active Substance: PYRIDOXINE
     Indication: Rheumatoid arthritis
     Route: 065
  6. VITAMIN B3 [Concomitant]
     Active Substance: NIACIN
     Indication: Rheumatoid arthritis
     Route: 065
     Dates: start: 20220620

REACTIONS (20)
  - Intervertebral disc protrusion [Unknown]
  - Tuberculosis [Recovering/Resolving]
  - Seizure [Recovering/Resolving]
  - Procedural pain [Unknown]
  - Joint range of motion decreased [Unknown]
  - Asthenia [Unknown]
  - Gait inability [Unknown]
  - Immunodeficiency [Unknown]
  - Urine odour abnormal [Recovering/Resolving]
  - Adverse food reaction [Unknown]
  - Hypophagia [Recovering/Resolving]
  - Cerebral disorder [Recovering/Resolving]
  - Osteoporosis [Recovering/Resolving]
  - Inflammation [Recovering/Resolving]
  - Cough [Recovering/Resolving]
  - Muscle disorder [Recovering/Resolving]
  - Pain in extremity [Recovered/Resolved]
  - Tremor [Recovering/Resolving]
  - Pain in extremity [Recovered/Resolved]
  - Bone pain [Not Recovered/Not Resolved]

NARRATIVE: CASE EVENT DATE: 20130101
